FAERS Safety Report 6011869-1 (Version None)
Quarter: 2008Q4

REPORT INFORMATION
  Report Type: 
  Country: None (occurrence: None)
  Receive Date: 20081218
  Receipt Date: 20080924
  Transmission Date: 20090506
  Serious: No
  Sender: FDA-Public Use
  Company Number: US-ASTRAZENECA-2008UW20150

PATIENT
  Age: 67 Year
  Sex: Female
  Weight: 59.9 kg

DRUGS (3)
  1. CRESTOR [Suspect]
     Indication: BLOOD CHOLESTEROL INCREASED
     Route: 048
     Dates: start: 20080908
  2. SYNTHROID [Concomitant]
  3. NEXIUM [Concomitant]
     Route: 048

REACTIONS (6)
  - ASTHENIA [None]
  - CHEST DISCOMFORT [None]
  - MUSCULAR WEAKNESS [None]
  - MYALGIA [None]
  - NAUSEA [None]
  - PARAESTHESIA [None]
